FAERS Safety Report 8057629-1 (Version None)
Quarter: 2012Q1

REPORT INFORMATION
  Report Type: 
  Country: None (occurrence: None)
  Receive Date: 20120120
  Receipt Date: 20120110
  Transmission Date: 20120608
  Serious: No
  Sender: FDA-Public Use
  Company Number: US-BIOGENIDEC-2011BI036182

PATIENT
  Age: 66 Year
  Sex: Female

DRUGS (2)
  1. PREDNISONE TAB [Concomitant]
     Indication: PREMEDICATION
     Dates: start: 20111208
  2. TYSABRI [Suspect]
     Indication: MULTIPLE SCLEROSIS
     Route: 042
     Dates: start: 20110823, end: 20111209

REACTIONS (5)
  - HYPERSENSITIVITY [None]
  - INFUSION RELATED REACTION [None]
  - THROAT TIGHTNESS [None]
  - DYSPNOEA [None]
  - URINARY TRACT INFECTION [None]
